FAERS Safety Report 5768770-8 (Version None)
Quarter: 2008Q2

REPORT INFORMATION
  Report Type: 
  Country: None (occurrence: None)
  Receive Date: 20080612
  Receipt Date: 20080311
  Transmission Date: 20081010
  Serious: No
  Sender: FDA-Public Use
  Company Number: US-ABBOTT-08P-163-0442141-00

PATIENT
  Sex: Male

DRUGS (2)
  1. HUMIRA [Suspect]
     Indication: RHEUMATOID ARTHRITIS
     Dosage: SYRINGE
     Route: 058
     Dates: start: 20080225
  2. HUMIRA [Suspect]
     Dosage: SYRINGE
     Route: 058
     Dates: end: 20080211

REACTIONS (1)
  - INJECTION SITE PAIN [None]
